FAERS Safety Report 7187961-5 (Version None)
Quarter: 2010Q4

REPORT INFORMATION
  Report Type: 
  Country: None (occurrence: None)
  Receive Date: 20101222
  Receipt Date: 20100712
  Transmission Date: 20110411
  Serious: No
  Sender: FDA-Public Use
  Company Number: US-AMGEN-KDL423863

PATIENT

DRUGS (3)
  1. ENBREL [Suspect]
     Indication: RHEUMATOID ARTHRITIS
     Dosage: 50 MG, QWK
     Route: 058
     Dates: start: 20100702
  2. UNSPECIFIED MEDICATION [Concomitant]
  3. UNSPECIFIED ANTIBIOTIC [Concomitant]

REACTIONS (5)
  - BLOOD GLUCOSE INCREASED [None]
  - JOINT SWELLING [None]
  - LARYNGITIS [None]
  - OEDEMA PERIPHERAL [None]
  - SINUSITIS [None]
